FAERS Safety Report 9746872 (Version 2)
Quarter: 2013Q4

REPORT INFORMATION
  Report Type: Spontaneous
  Country: US (occurrence: US)
  Receive Date: 20131211
  Receipt Date: 20131230
  Transmission Date: 20140711
  Serious: Yes (Hospitalization, Other)
  Sender: FDA-Public Use
  Company Number: US-ASTRAZENECA-2013SE88363

PATIENT
  Age: 116 Day
  Sex: Male

DRUGS (5)
  1. SYNAGIS [Suspect]
     Route: 030
     Dates: start: 20131126
  2. POTASSIUM CHLORIDE [Concomitant]
     Indication: BLOOD POTASSIUM DECREASED
  3. ZANTAC [Concomitant]
     Indication: GASTROOESOPHAGEAL REFLUX DISEASE
  4. PULMICORT [Concomitant]
     Indication: BRONCHOPULMONARY DYSPLASIA
  5. DIURIL [Concomitant]
     Indication: PULMONARY OEDEMA

REACTIONS (2)
  - Oxygen saturation decreased [Unknown]
  - Cough [Unknown]
